FAERS Safety Report 5322069-2 (Version None)
Quarter: 2007Q2

REPORT INFORMATION
  Report Type: 
  Country: None (occurrence: None)
  Receive Date: 20070511
  Receipt Date: 20070430
  Transmission Date: 20071010
  Serious: Yes (Hospitalization)
  Sender: FDA-Public Use
  Company Number: DE-NOVOPROD-263260

PATIENT
  Sex: Female

DRUGS (2)
  1. NOVOSEVEN [Suspect]
     Indication: PROPHYLAXIS
     Dosage: 60 UG/KG, UNK
  2. PLATELET AGGREGATION INHIBITORS [Concomitant]
     Indication: PROPHYLAXIS

REACTIONS (1)
  - SHUNT OCCLUSION [None]
